FAERS Safety Report 8088626-8 (Version None)
Quarter: 2012Q1

REPORT INFORMATION
  Report Type: 
  Country: None (occurrence: None)
  Receive Date: 20120128
  Receipt Date: 20110418
  Transmission Date: 20120608
  Serious: No
  Sender: FDA-Public Use
  Company Number: US-ABBOTT-11P-163-0720551-00

PATIENT
  Sex: Female

DRUGS (6)
  1. HUMIRA [Suspect]
     Indication: RHEUMATOID ARTHRITIS
     Dates: start: 20110415
  2. NAPROXEN [Concomitant]
     Indication: RHEUMATOID ARTHRITIS
     Dosage: ONCE OR TWICE DAILY
  3. METHOTREXATE [Concomitant]
     Indication: RHEUMATOID ARTHRITIS
     Dosage: 8 TABS ONCE WEEKLY
     Dates: start: 20101101
  4. FOLIC ACID [Concomitant]
     Indication: DRUG THERAPY
     Dates: start: 20101101
  5. LOESTRIN 1.5/30 [Concomitant]
     Indication: CONTRACEPTION
  6. MULTI-VITAMIN [Concomitant]
     Indication: VITAMIN SUPPLEMENTATION

REACTIONS (1)
  - HEADACHE [None]
